FAERS Safety Report 4560297-4 (Version None)
Quarter: 2005Q1

REPORT INFORMATION
  Report Type: 
  Country: None (occurrence: None)
  Receive Date: 20050120
  Receipt Date: 20050120
  Transmission Date: 20050727
  Serious: Yes (Life-Threatening, Hospitalization)
  Sender: FDA-Public Use
  Company Number: None

PATIENT
  Age: 82 Year
  Sex: Male
  Weight: 69 kg

DRUGS (1)
  1. ZOMETA [Suspect]
     Indication: NEOPLASM MALIGNANT
     Dosage: 4 MG Q WEEK      1 DOSE
     Dates: start: 20040824

REACTIONS (3)
  - FAILURE TO THRIVE [None]
  - MYOCARDIAL INFARCTION [None]
  - RENAL FAILURE ACUTE [None]
